FAERS Safety Report 5431600-8 (Version None)
Quarter: 2007Q3

REPORT INFORMATION
  Report Type: 
  Country: None (occurrence: None)
  Receive Date: 20070830
  Receipt Date: 20070824
  Transmission Date: 20080115
  Serious: Yes (Death, Hospitalization, Other)
  Sender: FDA-Public Use
  Company Number: US-ELI_LILLY_AND_COMPANY-US200706003855

PATIENT
  Age: 48 Year
  Sex: Male

DRUGS (7)
  1. CYMBALTA [Suspect]
  2. ATENOLOL [Concomitant]
  3. HYDROCODONE BITARTRATE [Concomitant]
  4. TRAZODONE HCL [Concomitant]
  5. ACETAMINOPHEN [Concomitant]
  6. XANAX [Concomitant]
  7. ETHANOL [Concomitant]

REACTIONS (4)
  - COMPLETED SUICIDE [None]
  - HEPATIC FAILURE [None]
  - RENAL FAILURE [None]
  - SUICIDE ATTEMPT [None]
